FAERS Safety Report 9357690 (Version 1)
Quarter: 2013Q2

REPORT INFORMATION
  Report Type: Spontaneous
  Country: US (occurrence: None)
  Receive Date: 20130619
  Receipt Date: 20130619
  Transmission Date: 20140414
  Serious: Yes (Death)
  Sender: FDA-Public Use
  Company Number: None

PATIENT
  Age: 48 Year
  Sex: Male
  Weight: 100 kg

DRUGS (1)
  1. SILDENAFIL [Suspect]
     Dates: start: 20120926, end: 20120926

REACTIONS (2)
  - Fall [None]
  - Unresponsive to stimuli [None]
